FAERS Safety Report 13405388 (Version 3)
Quarter: 2017Q2

REPORT INFORMATION
  Report Type: Spontaneous
  Country: PR (occurrence: PR)
  Receive Date: 20170405
  Receipt Date: 20170522
  Transmission Date: 20170830
  Serious: No
  Sender: FDA-Public Use
  Company Number: PR-PFIZER INC-2017077389

PATIENT
  Age: 70 Year
  Sex: Female
  Weight: 55.79 kg

DRUGS (4)
  1. TYLENOL [Concomitant]
     Active Substance: ACETAMINOPHEN
     Indication: HEADACHE
     Dosage: 500 MG, 1X/DAY
  2. TYLENOL [Concomitant]
     Active Substance: ACETAMINOPHEN
     Dosage: 1 DF, SINGLE (500; TOOK 1 PILL ONLY)
     Dates: start: 20170322
  3. FEMARA [Suspect]
     Active Substance: LETROZOLE
     Indication: BREAST CANCER FEMALE
     Dosage: 2.5 MG, 1X/DAY (WITH MEAL/X 28 DAYS)
     Route: 048
     Dates: start: 20170317
  4. IBRANCE [Suspect]
     Active Substance: PALBOCICLIB
     Indication: BREAST CANCER FEMALE
     Dosage: 100 MG, CYCLIC (DAILY FOR 21 DAY ONE WEEK REST EVERY 28 DAYS) (EVERYDAY WITH MEAL)
     Route: 048
     Dates: start: 20170317

REACTIONS (2)
  - Headache [Recovered/Resolved]
  - Dizziness [Recovered/Resolved]

NARRATIVE: CASE EVENT DATE: 20170317
